FAERS Safety Report 9629636 (Version 3)
Quarter: 2013Q4

REPORT INFORMATION
  Report Type: Report from Study
  Country: US (occurrence: US)
  Receive Date: 20131017
  Receipt Date: 20131025
  Transmission Date: 20140711
  Serious: Yes (Hospitalization)
  Sender: FDA-Public Use
  Company Number: US-ACTELION-A-US2011-50946

PATIENT
  Age: 72 Year
  Sex: Female
  Weight: 88.89 kg

DRUGS (23)
  1. VENTAVIS [Suspect]
     Indication: PULMONARY ARTERIAL HYPERTENSION
     Dosage: 5 MCG, 5-6 TIMES DAILY
     Route: 055
     Dates: start: 20130826
  2. VENTAVIS [Suspect]
     Dosage: 2.5 UG, UNK
     Route: 055
     Dates: start: 20100818
  3. VENTAVIS [Suspect]
     Dosage: UNK
     Route: 055
  4. VENTAVIS [Suspect]
     Dosage: UNK, 4 TIMES DAILY
     Route: 055
  5. REVATIO [Concomitant]
  6. CALCITRIOL [Concomitant]
  7. HYDRALAZINE [Concomitant]
  8. METOPROLOL TARTRATE [Concomitant]
  9. FUROSEMIDE [Concomitant]
  10. ALDACTONE [Concomitant]
  11. METFORMIN [Concomitant]
  12. GLYBURIDE [Concomitant]
  13. OMEPRAZOLE [Concomitant]
  14. CLARITIN [Concomitant]
  15. MULTIVITAMIN AND MINERAL SUPPLEMENT [Concomitant]
  16. OXYGEN [Concomitant]
  17. ASPIRIN [Concomitant]
  18. FISH OIL [Concomitant]
  19. GEMFIBROZIL [Concomitant]
  20. LUMIGAN [Concomitant]
  21. NIASPAN [Concomitant]
  22. PATADAY [Concomitant]
  23. SIMVASTATIN [Concomitant]

REACTIONS (12)
  - Gastrooesophageal reflux disease [Recovering/Resolving]
  - Headache [Unknown]
  - Nausea [Unknown]
  - Vomiting [Unknown]
  - Diarrhoea [Unknown]
  - Gastric ulcer [Unknown]
  - Condition aggravated [Unknown]
  - Hernia [Unknown]
  - Abdominal discomfort [Recovered/Resolved]
  - Decreased appetite [Recovered/Resolved]
  - Abdominal pain upper [Unknown]
  - Throat irritation [Unknown]
